FAERS Safety Report 10412047 (Version 2)
Quarter: 2014Q4

REPORT INFORMATION
  Report Type: Spontaneous
  Country: US (occurrence: None)
  Receive Date: 20140604
  Receipt Date: 20141010
  Transmission Date: 20150528
  Serious: Yes (Hospitalization, Other)
  Sender: FDA-Public Use
  Company Number: 163-POMAL-14050066

PATIENT
  Age: 71 Year
  Sex: Female
  Weight: 71.22 kg

DRUGS (2)
  1. POMALYST [Suspect]
     Active Substance: POMALIDOMIDE
     Indication: PLASMA CELL MYELOMA
     Route: 048
     Dates: start: 20140220
  2. VANCOMYCIN [Concomitant]
     Active Substance: VANCOMYCIN

REACTIONS (1)
  - Body temperature increased [None]

NARRATIVE: CASE EVENT DATE: 20140331
